FAERS Safety Report 5025033-6 (Version None)
Quarter: 2006Q2

REPORT INFORMATION
  Report Type: 
  Country: None (occurrence: None)
  Receive Date: 20060607
  Receipt Date: 20060522
  Transmission Date: 20061013
  Serious: Yes (Life-Threatening, Hospitalization)
  Sender: FDA-Public Use
  Company Number: US200605004741

PATIENT
  Age: 62 Year
  Sex: Male

DRUGS (2)
  1. HUMALOG [Suspect]
     Indication: DIABETES MELLITUS
     Dosage: 6 U, 3/D
  2. LANTUS [Concomitant]

REACTIONS (4)
  - ARRHYTHMIA [None]
  - CEREBROVASCULAR ACCIDENT [None]
  - CORONARY ARTERY SURGERY [None]
  - PHARMACEUTICAL PRODUCT COMPLAINT [None]
